FAERS Safety Report 10706593 (Version 2)
Quarter: 2015Q1

REPORT INFORMATION
  Report Type: Report from Study
  Country: JP (occurrence: JP)
  Receive Date: 20150113
  Receipt Date: 20150312
  Transmission Date: 20150721
  Serious: Yes (Hospitalization)
  Sender: FDA-Public Use
  Company Number: PHHY2015JP001856

PATIENT
  Age: 70 Year
  Sex: Male
  Weight: 54 kg

DRUGS (9)
  1. EXELON [Suspect]
     Active Substance: RIVASTIGMINE TARTRATE
     Indication: DEMENTIA ALZHEIMER^S TYPE
     Dosage: PATCH2.5(CM2)
     Route: 062
     Dates: start: 20131219, end: 20140110
  2. EXFORGE [Concomitant]
     Active Substance: AMLODIPINE BESYLATE\VALSARTAN
     Indication: HYPERTENSION
     Dosage: 1 DF, UNK
     Route: 048
     Dates: end: 20140110
  3. RISPERDAL [Concomitant]
     Active Substance: RISPERIDONE
     Indication: SCHIZOPHRENIA
     Dosage: 1 MG, QD
     Route: 048
     Dates: end: 20131224
  4. AMOBAN [Concomitant]
     Active Substance: ZOPICLONE
     Indication: INSOMNIA
     Dosage: 10 MG, UNK
     Route: 048
     Dates: end: 20140107
  5. DEPAS [Concomitant]
     Active Substance: ETIZOLAM
     Indication: SCHIZOPHRENIA
     Dosage: 1 MG, UNK
     Route: 048
     Dates: end: 20140107
  6. FAMOTIDINE. [Concomitant]
     Active Substance: FAMOTIDINE
     Indication: CHRONIC GASTRITIS
     Dosage: 10 MG, QD
     Route: 048
     Dates: end: 20140110
  7. MAGMITT [Concomitant]
     Active Substance: MAGNESIUM OXIDE
     Indication: CONSTIPATION
     Dosage: 990 MG, UNK
     Route: 048
     Dates: end: 20140110
  8. HYDANTOL F [Concomitant]
     Active Substance: CAFFEINE\PHENOBARBITAL\PHENYTOIN\SODIUM BENZOATE
     Indication: EPILEPSY
     Dosage: 4 DF, UNK
     Route: 048
     Dates: end: 20140109
  9. ULTIBRO BREEZHALER [Suspect]
     Active Substance: GLYCOPYRRONIUM\INDACATEROL
     Indication: CHRONIC OBSTRUCTIVE PULMONARY DISEASE
     Dosage: 1 DF, QD
     Route: 055
     Dates: end: 20140110

REACTIONS (3)
  - Eye movement disorder [Unknown]
  - Concomitant disease aggravated [Unknown]
  - Status epilepticus [Recovering/Resolving]

NARRATIVE: CASE EVENT DATE: 20140110
